FAERS Safety Report 8866688 (Version 1)
Quarter: 2012Q4

REPORT INFORMATION
  Report Type: 
  Country: US (occurrence: US)
  Receive Date: 20121025
  Receipt Date: 20121025
  Transmission Date: 20130627
  Serious: No
  Sender: FDA-Public Use
  Company Number: US-AMGEN-USASP2012012997

PATIENT
  Age: 51 Year
  Sex: Female
  Weight: 66.67 kg

DRUGS (22)
  1. ENBREL [Suspect]
     Indication: PRODUCT USED FOR UNKNOWN INDICATION
     Dosage: 50 mg, qwk
     Route: 058
  2. CYMBALTA [Concomitant]
     Dosage: 60 mg, UNK
  3. HUMALOG [Concomitant]
     Dosage: 100 ml, UNK
  4. PHENERGAN                          /00033001/ [Concomitant]
     Dosage: 25 mg, UNK
  5. PLAQUENIL                          /00072602/ [Concomitant]
     Dosage: 200 mg, UNK
  6. VOLTAREN                           /00372301/ [Concomitant]
     Dosage: 75 mg, UNK
  7. LASIX                              /00032601/ [Concomitant]
     Dosage: 40 mg, UNK
  8. TOPAMAX [Concomitant]
     Dosage: 50 mg, UNK
  9. PRAVASTATIN [Concomitant]
     Dosage: 10 mg, UNK
  10. METOCLOPRAM [Concomitant]
     Dosage: 10 mg, UNK
  11. TIZANIDINE [Concomitant]
     Dosage: 4 mg, UNK
  12. OMEPRAZOLE [Concomitant]
     Dosage: 20 mg, UNK
  13. VICTOZA [Concomitant]
     Dosage: 18 mg, UNK
  14. MORPHINE SULFATE [Concomitant]
     Dosage: 100 mg, UNK
  15. VALTREX [Concomitant]
     Dosage: UNK
  16. LOVAZA [Concomitant]
     Dosage: UNK
  17. CRESTOR [Concomitant]
     Dosage: 40 mg, UNK
  18. CLONAZEPAM [Concomitant]
     Dosage: 0.5 mg, UNK
  19. ADDERALL [Concomitant]
     Dosage: 20 mg, UNK
  20. FLECTOR                            /00372302/ [Concomitant]
     Dosage: 1.3 %, UNK
  21. ASPIRIN [Concomitant]
     Dosage: 81 mg, UNK
  22. D3 [Concomitant]
     Dosage: UNK

REACTIONS (2)
  - Nasal congestion [Not Recovered/Not Resolved]
  - Sinusitis [Recovering/Resolving]
